FAERS Safety Report 25658081 (Version 2)
Quarter: 2025Q3

REPORT INFORMATION
  Report Type: Spontaneous
  Country: EU (occurrence: EU)
  Receive Date: 20250808
  Receipt Date: 20250822
  Transmission Date: 20251021
  Serious: Yes (Other)
  Sender: ALKEM
  Company Number: EU-ALKEM LABORATORIES LIMITED-DE-ALKEM-2025-08185

PATIENT

DRUGS (1)
  1. IBUPROFEN [Suspect]
     Active Substance: IBUPROFEN
     Indication: Product used for unknown indication
     Route: 064

REACTIONS (4)
  - Pulmonary arterial hypertension [Unknown]
  - Neonatal cardiac failure [Unknown]
  - Ductus arteriosus stenosis foetal [Unknown]
  - Foetal exposure during pregnancy [Unknown]
